FAERS Safety Report 7762715-7 (Version None)
Quarter: 2011Q3

REPORT INFORMATION
  Report Type: 
  Country: None (occurrence: None)
  Receive Date: 20110920
  Receipt Date: 20110913
  Transmission Date: 20111222
  Serious: Yes (Other)
  Sender: FDA-Public Use
  Company Number: JP-PFIZER INC-2011214530

PATIENT
  Age: 82 Year
  Sex: Female
  Weight: 49 kg

DRUGS (12)
  1. LOXOPROFEN [Concomitant]
     Dosage: 60 MG, 3X/DAY
     Route: 048
  2. TEMSIROLIMUS [Suspect]
     Dosage: 15 MG, 1X/DAY
     Route: 042
     Dates: start: 20110609, end: 20110609
  3. TEMSIROLIMUS [Suspect]
     Indication: RENAL CELL CARCINOMA
     Dosage: 15 MG, 1X/DAY
     Route: 042
     Dates: start: 20110526, end: 20110526
  4. POLARAMINE [Concomitant]
     Dosage: 5 MG, 1X/DAY
     Route: 042
  5. OLMESARTAN MEDOXOMIL [Concomitant]
     Dosage: 20 MG, 1X/DAY
     Route: 048
  6. TEMSIROLIMUS [Suspect]
     Dosage: 15 MG, WEEKLY
     Route: 042
     Dates: start: 20110630, end: 20110714
  7. TEMSIROLIMUS [Suspect]
     Dosage: 20 MG, 1X/DAY
     Route: 042
     Dates: start: 20110616, end: 20110616
  8. LANSOPRAZOLE [Concomitant]
     Dosage: 15 MG, 1X/DAY
     Route: 048
  9. NIFEDIPINE [Concomitant]
     Dosage: 10 MG, 2X/DAY
     Route: 048
  10. TEMSIROLIMUS [Suspect]
     Dosage: 15 MG, 1X/DAY
     Route: 042
     Dates: start: 20110623, end: 20110623
  11. BENIDIPINE [Concomitant]
     Dosage: 4 MG, 2X/DAY
     Route: 048
  12. PROMACTA [Concomitant]
     Dosage: 75 MG, 2X/DAY
     Route: 048

REACTIONS (2)
  - DIABETES MELLITUS [None]
  - STOMATITIS [None]
